FAERS Safety Report 4528747-7 (Version None)
Quarter: 2004Q4

REPORT INFORMATION
  Report Type: 
  Country: None (occurrence: None)
  Receive Date: 20041216
  Receipt Date: 20031007
  Transmission Date: 20050328
  Serious: Yes (Hospitalization)
  Sender: FDA-Public Use
  Company Number: US-ROCHE-348915

PATIENT
  Age: 81 Year
  Sex: Female
  Weight: 40.8 kg

DRUGS (7)
  1. VALIUM [Suspect]
     Indication: ANXIETY
     Route: 048
     Dates: start: 19930615, end: 20030208
  2. VALIUM [Suspect]
     Route: 048
     Dates: start: 20030216
  3. VALIUM [Suspect]
     Route: 048
  4. VALIUM [Suspect]
     Route: 048
     Dates: end: 20040923
  5. ASPIRIN [Concomitant]
     Route: 048
  6. XALATAN [Concomitant]
     Indication: GLAUCOMA
  7. FOLIC ACID [Concomitant]
     Route: 048

REACTIONS (12)
  - ANOREXIA [None]
  - ANXIETY [None]
  - BLOOD PRESSURE DECREASED [None]
  - DEHYDRATION [None]
  - DIFFICULTY IN WALKING [None]
  - DIZZINESS [None]
  - DRUG TOLERANCE DECREASED [None]
  - FEELING ABNORMAL [None]
  - HYPOAESTHESIA [None]
  - NAUSEA [None]
  - SLEEP APNOEA SYNDROME [None]
  - VERTIGO [None]
